FAERS Safety Report 19409886 (Version 1)
Quarter: 2021Q2

REPORT INFORMATION
  Report Type: Spontaneous
  Country: US (occurrence: US)
  Receive Date: 20210614
  Receipt Date: 20210614
  Transmission Date: 20210717
  Serious: Yes (Life-Threatening, Hospitalization, Other)
  Sender: FDA-Public Use
  Company Number: US-AUROBINDO-AUR-APL-2021-023464

PATIENT
  Age: 23 Year
  Sex: Male

DRUGS (2)
  1. CITALOPRAM [Suspect]
     Active Substance: CITALOPRAM HYDROBROMIDE
     Indication: PRODUCT USED FOR UNKNOWN INDICATION
     Dosage: UNK
     Route: 065
  2. BUPROPION. [Suspect]
     Active Substance: BUPROPION
     Indication: PRODUCT USED FOR UNKNOWN INDICATION
     Dosage: UNK
     Route: 065

REACTIONS (9)
  - Ejection fraction decreased [Recovering/Resolving]
  - Shock [Recovering/Resolving]
  - Seizure [Recovered/Resolved]
  - Tachyarrhythmia [Recovered/Resolved]
  - Vasoplegia syndrome [Recovering/Resolving]
  - Acidosis [Recovering/Resolving]
  - Overdose [Recovering/Resolving]
  - Cardiac arrest [Recovered/Resolved]
  - Cardiogenic shock [Recovering/Resolving]
